FAERS Safety Report 25628166 (Version 1)
Quarter: 2025Q3

REPORT INFORMATION
  Report Type: Spontaneous
  Country: EU (occurrence: EU)
  Receive Date: 20250731
  Receipt Date: 20250731
  Transmission Date: 20251020
  Serious: Yes (Other)
  Sender: BAYER HEALTHCARE PHARMACEUTICALS INC.
  Company Number: EU-BAYER-2025A099347

PATIENT
  Age: 58 Year
  Sex: Female

DRUGS (1)
  1. VITRAKVI [Suspect]
     Active Substance: LAROTRECTINIB
     Indication: Glioblastoma
     Dosage: 75 MG, BID
     Dates: start: 20240425

REACTIONS (1)
  - Recurrent cancer [Not Recovered/Not Resolved]

NARRATIVE: CASE EVENT DATE: 20250716
